FAERS Safety Report 12132165 (Version 1)
Quarter: 2016Q1

REPORT INFORMATION
  Report Type: Spontaneous
  Country: CN (occurrence: CN)
  Receive Date: 20160301
  Receipt Date: 20160301
  Transmission Date: 20160526
  Serious: Yes (Hospitalization, Other)
  Sender: FDA-Public Use
  Company Number: CN-NOVOPROD-481358

PATIENT
  Age: 64 Year
  Sex: Female

DRUGS (1)
  1. NOVOLIN [Suspect]
     Active Substance: INSULIN HUMAN
     Indication: TYPE 2 DIABETES MELLITUS
     Dosage: 14 U, BID
     Route: 058
     Dates: start: 20110101, end: 20150805

REACTIONS (3)
  - Pyrexia [Unknown]
  - Productive cough [Unknown]
  - Hypoglycaemic coma [Recovering/Resolving]

NARRATIVE: CASE EVENT DATE: 20150806
